FAERS Safety Report 18165676 (Version 2)
Quarter: 2020Q3

REPORT INFORMATION
  Report Type: Spontaneous
  Country: IT (occurrence: IT)
  Receive Date: 20200819
  Receipt Date: 20200825
  Transmission Date: 20201103
  Serious: Yes (Other)
  Sender: FDA-Public Use
  Company Number: IT-TEVA-2020-IT-1811924

PATIENT
  Age: 15 Year
  Sex: Male

DRUGS (5)
  1. ISOTRETINOIN. [Suspect]
     Active Substance: ISOTRETINOIN
     Indication: NODULE
     Dosage: 0.2 MG/KG/DAY;
     Route: 065
  2. PREDNISONE. [Suspect]
     Active Substance: PREDNISONE
     Indication: ACNE FULMINANS
     Dosage: 50 MILLIGRAM DAILY; 0.8 MG/KG/DIE
     Route: 065
  3. PREDNISONE. [Suspect]
     Active Substance: PREDNISONE
     Dosage: PROGRESSIVELY TAPERED IN THREE MONTHS
     Route: 065
  4. ISOTRETINOIN. [Suspect]
     Active Substance: ISOTRETINOIN
     Dosage: GRADUALLY DOSE INCREASED
     Route: 065
  5. ISOTRETINOIN. [Suspect]
     Active Substance: ISOTRETINOIN
     Indication: ACNE
     Dosage: 20 MILLIGRAM DAILY; 0.4 MG/KG/DAY
     Route: 065

REACTIONS (4)
  - Weight increased [Recovered/Resolved]
  - Insomnia [Recovered/Resolved]
  - Acne fulminans [Recovered/Resolved with Sequelae]
  - Irritability [Recovered/Resolved]
